FAERS Safety Report 11237600 (Version 1)
Quarter: 2015Q3

REPORT INFORMATION
  Report Type: Spontaneous
  Country: US (occurrence: US)
  Receive Date: 20150703
  Receipt Date: 20150703
  Transmission Date: 20151125
  Serious: Yes (Hospitalization)
  Sender: FDA-Public Use
  Company Number: US-ROCHE-1602984

PATIENT
  Age: 25 Year
  Sex: Female

DRUGS (1)
  1. PULMOZYME [Suspect]
     Active Substance: DORNASE ALFA
     Indication: CYSTIC FIBROSIS
     Dosage: 1 MG/ML, INHALE ONE VIAL
     Route: 055

REACTIONS (8)
  - Chest pain [Unknown]
  - Pyrexia [Unknown]
  - Nausea [Unknown]
  - Oropharyngeal pain [Unknown]
  - Ovarian cyst [Unknown]
  - Headache [Recovered/Resolved]
  - Fatigue [Unknown]
  - Tremor [Unknown]

NARRATIVE: CASE EVENT DATE: 201506
